FAERS Safety Report 5337981-8 (Version None)
Quarter: 2007Q2

REPORT INFORMATION
  Report Type: 
  Country: None (occurrence: None)
  Receive Date: 20070530
  Receipt Date: 20070518
  Transmission Date: 20071010
  Serious: Yes (Other)
  Sender: FDA-Public Use
  Company Number: US-ELI_LILLY_AND_COMPANY-US200705004787

PATIENT
  Age: 51 Year
  Sex: Male

DRUGS (18)
  1. ZYPREXA [Suspect]
     Indication: AGITATION
     Dosage: 2.5 MG, EVERY 6 HRS
     Dates: start: 20070516
  2. AMIODARONE HCL [Concomitant]
  3. VANCOMYCIN [Concomitant]
  4. POTASSIUM ACETATE [Concomitant]
  5. MAGNESIUM SULFATE [Concomitant]
  6. HYDROCORTISONE [Concomitant]
  7. DIGOXIN [Concomitant]
  8. SPIRONOLACTONE [Concomitant]
  9. ZOSYN [Concomitant]
  10. ZOFRAN [Concomitant]
  11. EPINEPHRINE [Concomitant]
  12. VASOPRESSIN [Concomitant]
  13. DARBEPOETIN ALFA [Concomitant]
  14. LASIX [Concomitant]
  15. OMEPRAZOLE [Concomitant]
  16. PRAVASTATIN [Concomitant]
  17. PLAVIX [Concomitant]
  18. ASPIRIN [Concomitant]

REACTIONS (1)
  - TORSADE DE POINTES [None]
